FAERS Safety Report 8164328-4 (Version None)
Quarter: 2012Q1

REPORT INFORMATION
  Report Type: 
  Country: None (occurrence: None)
  Receive Date: 20120224
  Receipt Date: 20120215
  Transmission Date: 20120608
  Serious: Yes (Death, Other)
  Sender: FDA-Public Use
  Company Number: NL-BAXTER-2012BH003415

PATIENT
  Age: 79 Year
  Sex: Male

DRUGS (9)
  1. PHYSIOSOL IN PLASTIC CONTAINER [Suspect]
     Indication: PERITONEAL DIALYSIS
     Route: 033
     Dates: start: 20120130
  2. EXTRANEAL [Suspect]
     Indication: PERITONEAL DIALYSIS
     Route: 033
     Dates: start: 20120130
  3. PHYSIOSOL IN PLASTIC CONTAINER [Suspect]
     Route: 033
     Dates: start: 20120130
  4. PHYSIOSOL IN PLASTIC CONTAINER [Suspect]
     Route: 033
  5. EXTRANEAL [Suspect]
     Route: 033
  6. PHYSIOSOL IN PLASTIC CONTAINER [Suspect]
     Route: 033
     Dates: start: 20120130
  7. PHYSIOSOL IN PLASTIC CONTAINER [Suspect]
     Route: 033
     Dates: start: 20120130
  8. EXTRANEAL [Suspect]
     Route: 033
  9. PHYSIOSOL IN PLASTIC CONTAINER [Suspect]
     Route: 033

REACTIONS (2)
  - NONINFECTIOUS PERITONITIS [None]
  - DEATH [None]
